FAERS Safety Report 8961071 (Version 1)
Quarter: 2012Q4

REPORT INFORMATION
  Report Type: 
  Country: MY (occurrence: MY)
  Receive Date: 20121212
  Receipt Date: 20121212
  Transmission Date: 20130627
  Serious: Yes (Death, Other)
  Sender: FDA-Public Use
  Company Number: MY-WATSON-2012-21647

PATIENT
  Age: 79 Year
  Sex: Male

DRUGS (5)
  1. PREDNISONE (UNKNOWN) [Suspect]
     Indication: ANGIOIMMUNOBLASTIC T-CELL LYMPHOMA
     Dosage: 100 mg, unknown
     Route: 048
     Dates: start: 20101101
  2. DEXAMETHASONE [Suspect]
     Indication: ANGIOIMMUNOBLASTIC T-CELL LYMPHOMA
     Dosage: 8 mg, tid
     Route: 042
  3. CYCLOPHOSPHAMIDE [Suspect]
     Indication: ANGIOIMMUNOBLASTIC T-CELL LYMPHOMA
     Dosage: 750 mg/m2, unknown
     Route: 042
     Dates: start: 20101101
  4. DOXORUBICIN [Suspect]
     Indication: ANGIOIMMUNOBLASTIC T-CELL LYMPHOMA
     Dosage: 50 mg/m2, unknown
     Route: 042
     Dates: start: 20101101
  5. VINCRISTINE [Suspect]
     Indication: ANGIOIMMUNOBLASTIC T-CELL LYMPHOMA
     Dosage: 1.4 mg, unknown
     Route: 042
     Dates: start: 20101101

REACTIONS (5)
  - Septic shock [Fatal]
  - Strongyloidiasis [Fatal]
  - Klebsiella infection [Fatal]
  - Multi-organ failure [Fatal]
  - Diarrhoea [None]
